FAERS Safety Report 20191341 (Version 2)
Quarter: 2021Q4

REPORT INFORMATION
  Report Type: Report from Study
  Country: US (occurrence: US)
  Receive Date: 20211216
  Receipt Date: 20211219
  Transmission Date: 20220303
  Serious: Yes (Other)
  Sender: FDA-Public Use
  Company Number: US-ABBVIE-21K-163-4121293-00

PATIENT
  Sex: Female
  Weight: 63.560 kg

DRUGS (5)
  1. HUMIRA [Suspect]
     Active Substance: ADALIMUMAB
     Indication: Rheumatoid arthritis
     Dosage: CITRATE FREE
     Route: 058
     Dates: start: 201901
  2. MODERNA COVID-19 VACCINE [Suspect]
     Active Substance: ELASOMERAN
     Indication: COVID-19 immunisation
     Dosage: FIRST DOSE
     Route: 030
     Dates: start: 20210411, end: 20210411
  3. METHOTREXATE [Concomitant]
     Active Substance: METHOTREXATE
     Indication: Rheumatoid arthritis
  4. FOLIC ACID [Concomitant]
     Active Substance: FOLIC ACID
     Indication: Supplementation therapy
  5. PROLIA [Concomitant]
     Active Substance: DENOSUMAB
     Indication: Bone disorder

REACTIONS (6)
  - Osteoarthritis [Recovering/Resolving]
  - Gait disturbance [Recovering/Resolving]
  - Vaccination site reaction [Unknown]
  - Feeling hot [Recovered/Resolved]
  - Peripheral swelling [Recovered/Resolved]
  - Musculoskeletal discomfort [Recovering/Resolving]

NARRATIVE: CASE EVENT DATE: 20200101
